FAERS Safety Report 6016152-6 (Version None)
Quarter: 2008Q4

REPORT INFORMATION
  Report Type: 
  Country: None (occurrence: None)
  Receive Date: 20081218
  Receipt Date: 20081203
  Transmission Date: 20090506
  Serious: Yes (Hospitalization)
  Sender: FDA-Public Use
  Company Number: 2008-01332FE

PATIENT
  Age: 42 Year
  Sex: Female

DRUGS (3)
  1. MENOPUR [Suspect]
     Indication: INFERTILITY FEMALE
     Dosage: SC
     Route: 058
     Dates: start: 20080901, end: 20080901
  2. PUREGON (PUREGON /01348901/) (FOLLITROPIN BETA) [Suspect]
     Indication: INFERTILITY FEMALE
     Dosage: SC
     Route: 058
     Dates: start: 20080901, end: 20080901
  3. TRIPTORELIN EMBONATE [Concomitant]

REACTIONS (23)
  - ABSCESS BACTERIAL [None]
  - ABSCESS LIMB [None]
  - BLOOD CULTURE POSITIVE [None]
  - CAPILLARY LEAK SYNDROME [None]
  - CARDIO-RESPIRATORY ARREST [None]
  - COMPARTMENT SYNDROME [None]
  - DISSEMINATED INTRAVASCULAR COAGULATION [None]
  - ESCHERICHIA SEPSIS [None]
  - FLUID OVERLOAD [None]
  - HAEMATOCRIT INCREASED [None]
  - HAEMODIALYSIS [None]
  - HYPOVOLAEMIC SHOCK [None]
  - ISCHAEMIA [None]
  - MALAISE [None]
  - MUSCLE NECROSIS [None]
  - NECROSIS [None]
  - PNEUMONIA [None]
  - PROTEIN TOTAL DECREASED [None]
  - RENAL FAILURE ACUTE [None]
  - RENAL TUBULAR NECROSIS [None]
  - RHABDOMYOLYSIS [None]
  - STAPHYLOCOCCAL ABSCESS [None]
  - TENDON DISORDER [None]
